FAERS Safety Report 6702133-3 (Version None)
Quarter: 2010Q2

REPORT INFORMATION
  Report Type: 
  Country: None (occurrence: None)
  Receive Date: 20100429
  Receipt Date: 20100415
  Transmission Date: 20101027
  Serious: Yes (Other)
  Sender: FDA-Public Use
  Company Number: PHEH2009US15133

PATIENT
  Sex: Female

DRUGS (5)
  1. ZOMETA [Suspect]
     Indication: OSTEOPOROSIS
     Dosage: ONCE A MONTH
     Route: 042
  2. XELODA [Concomitant]
  3. FEMARA [Concomitant]
     Indication: BREAST CANCER
  4. TAMOXIFEN CITRATE [Concomitant]
     Indication: BREAST CANCER
  5. AMOXICILLIN [Concomitant]

REACTIONS (20)
  - ANXIETY [None]
  - ASTHENIA [None]
  - BACK PAIN [None]
  - BIOPSY BONE [None]
  - BONE LESION [None]
  - BREAST CANCER METASTATIC [None]
  - DECREASED INTEREST [None]
  - DUODENITIS [None]
  - GASTRITIS [None]
  - GENERAL PHYSICAL HEALTH DETERIORATION [None]
  - GINGIVAL BLEEDING [None]
  - HIATUS HERNIA [None]
  - KYPHOSIS [None]
  - METASTASES TO BONE [None]
  - OESOPHAGITIS [None]
  - ORAL TORUS [None]
  - OSTEONECROSIS [None]
  - PAIN [None]
  - SCOLIOSIS [None]
  - TOOTH DISORDER [None]
